FAERS Safety Report 7220038-9 (Version None)
Quarter: 2011Q1

REPORT INFORMATION
  Report Type: 
  Country: None (occurrence: None)
  Receive Date: 20110111
  Receipt Date: 20101221
  Transmission Date: 20110831
  Serious: Yes (Hospitalization, Congenital Anomaly)
  Sender: FDA-Public Use
  Company Number: A0772888A

PATIENT
  Sex: Male

DRUGS (4)
  1. PAXIL [Suspect]
     Indication: ANXIETY
     Dosage: 20MG PER DAY
     Dates: start: 19971201, end: 20030401
  2. LEXAPRO [Concomitant]
  3. CALCIUM [Concomitant]
  4. PRENATAL VITAMINS [Concomitant]

REACTIONS (6)
  - COARCTATION OF THE AORTA [None]
  - DRUG EXPOSURE DURING PREGNANCY [None]
  - RIGHT AORTIC ARCH [None]
  - AORTA HYPOPLASIA [None]
  - ARNOLD-CHIARI MALFORMATION [None]
  - CONGENITAL CARDIOVASCULAR ANOMALY [None]
